FAERS Safety Report 5318827-0 (Version None)
Quarter: 2007Q2

REPORT INFORMATION
  Report Type: 
  Country: None (occurrence: None)
  Receive Date: 20070508
  Receipt Date: 20070501
  Transmission Date: 20071010
  Serious: Yes (Hospitalization)
  Sender: FDA-Public Use
  Company Number: PHBS2007DK07569

PATIENT
  Age: 73 Year
  Sex: Female

DRUGS (1)
  1. VOLTAREN [Suspect]
     Route: 061
     Dates: start: 20070403, end: 20070403

REACTIONS (2)
  - ANAPHYLACTIC REACTION [None]
  - OEDEMA [None]
